FAERS Safety Report 9767770 (Version 1)
Quarter: 2013Q3

REPORT INFORMATION
  Report Type: Spontaneous
  Country: US (occurrence: None)
  Receive Date: 20130903
  Receipt Date: 20130903
  Transmission Date: 20140515
  Serious: Yes (Other)
  Sender: FDA-Public Use
  Company Number: 122998

PATIENT
  Age: 40 Year
  Sex: Female

DRUGS (1)
  1. CERUBIDIN [Suspect]
     Indication: ACUTE MYELOID LEUKAEMIA
     Route: 042
     Dates: start: 20090119, end: 20090121

REACTIONS (3)
  - Drug eruption [None]
  - Acute febrile neutrophilic dermatosis [None]
  - Acute febrile neutrophilic dermatosis [None]
